FAERS Safety Report 21499879 (Version 10)
Quarter: 2025Q3

REPORT INFORMATION
  Report Type: Spontaneous
  Country: US (occurrence: US)
  Receive Date: 20221024
  Receipt Date: 20250828
  Transmission Date: 20251020
  Serious: Yes (Other)
  Sender: PFIZER
  Company Number: US-PFIZER INC-2021314200

PATIENT
  Age: 70 Year
  Sex: Female

DRUGS (20)
  1. XELJANZ [Suspect]
     Active Substance: TOFACITINIB CITRATE
     Indication: Arthralgia
     Dates: start: 202103
  2. XELJANZ [Suspect]
     Active Substance: TOFACITINIB CITRATE
     Indication: Pain
  3. ASPIRIN [Concomitant]
     Active Substance: ASPIRIN
  4. ATENOLOL [Concomitant]
     Active Substance: ATENOLOL
  5. CEFIXIME [Concomitant]
     Active Substance: CEFIXIME
  6. FLONASE [Concomitant]
     Active Substance: FLUTICASONE PROPIONATE
  7. GABAPENTIN [Concomitant]
     Active Substance: GABAPENTIN
  8. IRON [Concomitant]
     Active Substance: IRON
  9. ISOSORBIDE [Concomitant]
     Active Substance: ISOSORBIDE
  10. LOSARTAN [Concomitant]
     Active Substance: LOSARTAN
  11. NEXIUM I.V. [Concomitant]
     Active Substance: ESOMEPRAZOLE SODIUM
  12. SIMVASTATIN [Concomitant]
     Active Substance: SIMVASTATIN
  13. TYLENOL [Concomitant]
     Active Substance: ACETAMINOPHEN
  14. VITAMIN D NOS [Concomitant]
     Active Substance: CHOLECALCIFEROL\ERGOCALCIFEROL
  15. VITAMIN B12 [Concomitant]
     Active Substance: CYANOCOBALAMIN
  16. FINASTERIDE [Concomitant]
     Active Substance: FINASTERIDE
  17. CYCLOBENZAPRINE [Concomitant]
     Active Substance: CYCLOBENZAPRINE
  18. LORATADINE [Concomitant]
     Active Substance: LORATADINE
  19. DICLOFENAC [Concomitant]
     Active Substance: DICLOFENAC
  20. METHOCARBAMOL [Concomitant]
     Active Substance: METHOCARBAMOL

REACTIONS (11)
  - Mental impairment [Unknown]
  - Cataract [Unknown]
  - Nasopharyngitis [Unknown]
  - Cough [Unknown]
  - Alopecia [Recovering/Resolving]
  - Back pain [Not Recovered/Not Resolved]
  - Illness [Unknown]
  - Tremor [Unknown]
  - Eye disorder [Unknown]
  - Off label use [Unknown]
  - Drug effective for unapproved indication [Unknown]

NARRATIVE: CASE EVENT DATE: 20210301
